FAERS Safety Report 6582275-6 (Version None)
Quarter: 2010Q1

REPORT INFORMATION
  Report Type: 
  Country: None (occurrence: None)
  Receive Date: 20100216
  Receipt Date: 20100106
  Transmission Date: 20100710
  Serious: No
  Sender: FDA-Public Use
  Company Number: A0838046A

PATIENT
  Age: 72 Year
  Sex: Female

DRUGS (7)
  1. VERAMYST [Suspect]
     Dosage: 2PUFF PER DAY
     Route: 045
     Dates: start: 20091224
  2. MECLIZINE [Concomitant]
  3. ALPRAZOLAM [Concomitant]
  4. TRIAMTERENE [Concomitant]
  5. METOPROLOL TARTRATE [Concomitant]
  6. HYDRALAZINE [Concomitant]
  7. MUCINEX [Concomitant]

REACTIONS (1)
  - DIZZINESS [None]
